FAERS Safety Report 20043746 (Version 1)
Quarter: 2021Q4

REPORT INFORMATION
  Report Type: Spontaneous
  Country: PT (occurrence: PT)
  Receive Date: 20211108
  Receipt Date: 20211108
  Transmission Date: 20220303
  Serious: Yes (Life-Threatening, Hospitalization)
  Sender: FDA-Public Use
  Company Number: PT-MYLANLABS-2021M1080567

PATIENT
  Age: 37 Year
  Sex: Male

DRUGS (1)
  1. ALLOPURINOL [Suspect]
     Active Substance: ALLOPURINOL
     Indication: Gout
     Dosage: 300 MILLIGRAM, QD
     Route: 065

REACTIONS (6)
  - Drug reaction with eosinophilia and systemic symptoms [Recovered/Resolved]
  - Human herpesvirus 6 infection [Recovered/Resolved]
  - Hyperbilirubinaemia [Recovered/Resolved]
  - Hepatomegaly [Recovered/Resolved]
  - Acute kidney injury [Recovered/Resolved]
  - Confusional state [Recovered/Resolved]
